FAERS Safety Report 7279684-9 (Version None)
Quarter: 2011Q1

REPORT INFORMATION
  Report Type: 
  Country: None (occurrence: None)
  Receive Date: 20110208
  Receipt Date: 20110131
  Transmission Date: 20110831
  Serious: Yes (Death, Other)
  Sender: FDA-Public Use
  Company Number: US-CELGENEUS-163-21880-10091799

PATIENT
  Sex: Female

DRUGS (18)
  1. LIDOCAINE HCL VISCOUS [Concomitant]
     Route: 065
  2. PERCOCET [Concomitant]
     Dosage: 10-325MG
     Route: 065
  3. PROMETHAZINE [Concomitant]
     Route: 065
  4. REVLIMID [Suspect]
     Indication: MULTIPLE MYELOMA
     Route: 048
     Dates: start: 20091016, end: 20100817
  5. BACITRACIN [Concomitant]
     Dosage: 500 UNIT/G
     Route: 065
  6. PRILOSEC [Concomitant]
     Route: 048
  7. SOMA [Concomitant]
     Route: 065
  8. ADVAIR DISKUS 100/50 [Concomitant]
     Dosage: 250/50 MCG
     Route: 055
  9. MS CONTIN [Concomitant]
     Route: 065
  10. DEXAMETHASONE [Concomitant]
     Route: 065
  11. DILAUDID [Concomitant]
     Route: 065
  12. TRIAMCINOLONE ACETONIDE [Concomitant]
     Route: 061
  13. XYLOCAINE [Concomitant]
     Indication: PAIN
     Route: 065
  14. KLOR-CON [Concomitant]
     Route: 048
  15. OXYCODONE HCL [Concomitant]
     Route: 065
  16. VENTOLIN HFA [Concomitant]
     Route: 055
  17. EFFEXOR XR [Concomitant]
     Route: 048
  18. XANAX [Concomitant]
     Route: 048

REACTIONS (6)
  - GASTROOESOPHAGEAL REFLUX DISEASE [None]
  - PNEUMONIA ASPIRATION [None]
  - RESPIRATORY FAILURE [None]
  - CHRONIC OBSTRUCTIVE PULMONARY DISEASE [None]
  - SEPTIC SHOCK [None]
  - SUPRAVENTRICULAR TACHYCARDIA [None]
